FAERS Safety Report 24451092 (Version 1)
Quarter: 2024Q4

REPORT INFORMATION
  Report Type: Spontaneous
  Country: US (occurrence: US)
  Receive Date: 20241017
  Receipt Date: 20241017
  Transmission Date: 20250115
  Serious: Yes (Life-Threatening, Hospitalization)
  Sender: LEO PHARM
  Company Number: US-LEO Pharma-374160

PATIENT
  Age: 20 Year
  Sex: Female

DRUGS (1)
  1. ADBRY [Suspect]
     Active Substance: TRALOKINUMAB-LDRM
     Indication: Dermatitis atopic

REACTIONS (1)
  - Hospitalisation [Unknown]
